FAERS Safety Report 9407322 (Version 3)
Quarter: 2013Q4

REPORT INFORMATION
  Report Type: Spontaneous
  Country: US (occurrence: US)
  Receive Date: 20130718
  Receipt Date: 20131101
  Transmission Date: 20140711
  Serious: Yes (Hospitalization, Other)
  Sender: FDA-Public Use
  Company Number: US-PFIZER INC-2013207440

PATIENT
  Age: 59 Year
  Sex: Female

DRUGS (4)
  1. XELJANZ [Suspect]
     Indication: RHEUMATOID ARTHRITIS
     Dosage: 5 MG, 2X/DAY
     Route: 048
     Dates: start: 20130131, end: 20130710
  2. METHOTREXATE [Concomitant]
     Indication: RHEUMATOID ARTHRITIS
     Dosage: 15 MG, WEEKLY (EVERY WEDNESDAY)
     Dates: start: 20110516, end: 20130610
  3. MEDROL [Concomitant]
     Indication: RHEUMATOID ARTHRITIS
     Dosage: 0.4 MG, 2X/DAY, TAPERING DOSE
     Dates: start: 20101019, end: 20130606
  4. PREDNISONE [Concomitant]
     Dosage: 5 MG, ALTERNATE DAY (EVERY OTHER DAY)

REACTIONS (2)
  - Meningitis haemophilus [Recovered/Resolved with Sequelae]
  - Intraspinal abscess [Unknown]
